FAERS Safety Report 15216928 (Version 2)
Quarter: 2018Q3

REPORT INFORMATION
  Report Type: Spontaneous
  Country: US (occurrence: US)
  Receive Date: 20180730
  Receipt Date: 20180919
  Transmission Date: 20181010
  Serious: No
  Sender: FDA-Public Use
  Company Number: US-ACTELION-A-NJ2018-176222

PATIENT
  Age: 4 Year
  Sex: Female
  Weight: 7.26 kg

DRUGS (2)
  1. REVATIO [Concomitant]
     Active Substance: SILDENAFIL CITRATE
  2. TRACLEER [Suspect]
     Active Substance: BOSENTAN
     Indication: PULMONARY ARTERIAL HYPERTENSION
     Dosage: 15.625 (1/4 TABLET) MG, BID
     Route: 048

REACTIONS (3)
  - Eye swelling [Unknown]
  - Hypersensitivity [Unknown]
  - Foreign body in eye [Unknown]
